FAERS Safety Report 10172643 (Version 4)
Quarter: 2014Q2

REPORT INFORMATION
  Report Type: Report from Study
  Country: CA (occurrence: CA)
  Receive Date: 20140515
  Receipt Date: 20140630
  Transmission Date: 20141212
  Serious: Yes (Other)
  Sender: FDA-Public Use
  Company Number: CA-ABBVIE-14K-028-1234836-00

PATIENT
  Sex: Female

DRUGS (1)
  1. HUMIRA [Suspect]
     Indication: CROHN^S DISEASE
     Route: 058
     Dates: start: 20081031

REACTIONS (10)
  - Ocular hyperaemia [Recovered/Resolved]
  - Unevaluable event [Unknown]
  - Wound contamination [Unknown]
  - Colour blindness acquired [Not Recovered/Not Resolved]
  - Visual impairment [Not Recovered/Not Resolved]
  - Stomatitis [Unknown]
  - Ocular hyperaemia [Not Recovered/Not Resolved]
  - Eye disorder [Not Recovered/Not Resolved]
  - Eye swelling [Not Recovered/Not Resolved]
  - Drug ineffective [Unknown]
